FAERS Safety Report 8569983 (Version 5)
Quarter: 2013Q3

REPORT INFORMATION
  Report Type: Spontaneous
  Country: US (occurrence: US)
  Receive Date: 20120518
  Receipt Date: 20130917
  Transmission Date: 20140515
  Serious: Yes (Hospitalization, Other)
  Sender: FDA-Public Use
  Company Number: US-ROCHE-788362

PATIENT
  Age: 43 Year
  Sex: Male
  Weight: 72.64 kg

DRUGS (2)
  1. ACCUTANE [Suspect]
     Indication: ACNE
     Route: 048
     Dates: start: 1999, end: 2000
  2. ACCUTANE [Suspect]
     Route: 048
     Dates: start: 199905, end: 199910

REACTIONS (18)
  - Colitis ulcerative [Unknown]
  - Inflammatory bowel disease [Unknown]
  - Emotional distress [Unknown]
  - Deep vein thrombosis [Unknown]
  - Crohn^s disease [Unknown]
  - Intestinal haemorrhage [Unknown]
  - Depression [Unknown]
  - Anal fistula [Unknown]
  - Intestinal obstruction [Unknown]
  - Polyp [Unknown]
  - Anal abscess [Unknown]
  - Rectal perforation [Unknown]
  - Rectal fissure [Unknown]
  - Rash [Unknown]
  - Pruritus [Unknown]
  - Blood cholesterol increased [Unknown]
  - Blood triglycerides increased [Unknown]
  - Acne [Unknown]
